FAERS Safety Report 6097346-0 (Version None)
Quarter: 2009Q1

REPORT INFORMATION
  Report Type: 
  Country: None (occurrence: None)
  Receive Date: 20090226
  Receipt Date: 20090226
  Transmission Date: 20090719
  Serious: Yes (Disabling)
  Sender: FDA-Public Use
  Company Number: None

PATIENT
  Age: 44 Year
  Sex: Female
  Weight: 68.0396 kg

DRUGS (4)
  1. LAMOTRIGINE [Suspect]
     Indication: BIPOLAR DISORDER
     Dosage: 100 MG THREE TIMES BID
     Dates: start: 20090206, end: 20090301
  2. INVEGA [Concomitant]
  3. GEODON [Concomitant]
  4. TOPAMAX [Concomitant]

REACTIONS (15)
  - ABNORMAL DREAMS [None]
  - BIPOLAR DISORDER [None]
  - CONFUSIONAL STATE [None]
  - DELAYED SLEEP PHASE [None]
  - DEPRESSION [None]
  - DIZZINESS [None]
  - FLASHBACK [None]
  - GENERAL PHYSICAL HEALTH DETERIORATION [None]
  - HEADACHE [None]
  - IMPAIRED WORK ABILITY [None]
  - MANIA [None]
  - MIDDLE INSOMNIA [None]
  - PSYCHOMOTOR HYPERACTIVITY [None]
  - TACHYPHRENIA [None]
  - THERAPEUTIC RESPONSE UNEXPECTED WITH DRUG SUBSTITUTION [None]
